FAERS Safety Report 16557179 (Version 1)
Quarter: 2019Q3

REPORT INFORMATION
  Report Type: Spontaneous
  Country: US (occurrence: US)
  Receive Date: 20190711
  Receipt Date: 20190711
  Transmission Date: 20191004
  Serious: No
  Sender: FDA-Public Use
  Company Number: US-BAYER-2019-128643

PATIENT
  Age: 50 Year
  Sex: Female

DRUGS (2)
  1. SORAFENIB (RAF KINASE INHIBITOR) [Suspect]
     Active Substance: SORAFENIB
     Route: 048
  2. THALIDOMIDE [Suspect]
     Active Substance: THALIDOMIDE

REACTIONS (2)
  - Product use in unapproved indication [None]
  - Off label use [None]
